FAERS Safety Report 4941624-2 (Version None)
Quarter: 2006Q1

REPORT INFORMATION
  Report Type: 
  Country: None (occurrence: None)
  Receive Date: 20060308
  Receipt Date: 20060223
  Transmission Date: 20060701
  Serious: Yes (Hospitalization)
  Sender: FDA-Public Use
  Company Number: 2006028483

PATIENT
  Age: 61 Year
  Sex: Male

DRUGS (2)
  1. IRINOTECAN HCL [Suspect]
     Indication: RECTAL CANCER
     Dosage: INTRAVENOUS
     Route: 042
     Dates: start: 20050729
  2. CETUXIMAB (CETUXIMAB) [Suspect]
     Indication: RECTAL CANCER
     Dosage: 300 MG, INTERVAL: EVERY WEEK, INTRAVENOUS
     Route: 042
     Dates: start: 20050726

REACTIONS (2)
  - ACNE [None]
  - PARONYCHIA [None]
